FAERS Safety Report 5920207-1 (Version None)
Quarter: 2008Q4

REPORT INFORMATION
  Report Type: 
  Country: None (occurrence: None)
  Receive Date: 20081016
  Receipt Date: 20080102
  Transmission Date: 20090506
  Serious: No
  Sender: FDA-Public Use
  Company Number: A0697297A

PATIENT
  Age: 15 Year
  Sex: Male

DRUGS (4)
  1. CEFUROXIME AXETIL [Suspect]
     Indication: ACNE
     Dosage: 500MG PER DAY
     Route: 048
     Dates: start: 20070901
  2. TAZORAC [Concomitant]
  3. BENZOYL PEROXIDE [Concomitant]
  4. LEVAQUIN [Concomitant]

REACTIONS (2)
  - ACNE [None]
  - MEDICATION ERROR [None]
